FAERS Safety Report 5744640-6 (Version None)
Quarter: 2008Q2

REPORT INFORMATION
  Report Type: 
  Country: None (occurrence: None)
  Receive Date: 20080516
  Receipt Date: 20080502
  Transmission Date: 20081010
  Serious: Yes (Life-Threatening, Hospitalization, Other)
  Sender: FDA-Public Use
  Company Number: OPER20080095

PATIENT
  Age: 15 Year
  Sex: Male

DRUGS (1)
  1. OPANA ER [Suspect]
     Dosage: 40 MG, 1 TABLET, UNKNOWN
     Dates: start: 20080112, end: 20080112

REACTIONS (4)
  - DRUG DIVERSION [None]
  - MALAISE [None]
  - SELF-MEDICATION [None]
  - VICTIM OF CRIME [None]
